FAERS Safety Report 5809149-X (Version None)
Quarter: 2008Q3

REPORT INFORMATION
  Report Type: 
  Country: None (occurrence: None)
  Receive Date: 20080714
  Receipt Date: 20080708
  Transmission Date: 20090109
  Serious: Yes (Hospitalization)
  Sender: FDA-Public Use
  Company Number: JP-ASTRAZENECA-2008AP04726

PATIENT
  Age: 70 Year
  Sex: Male

DRUGS (7)
  1. TENORMIN [Suspect]
     Indication: SICK SINUS SYNDROME
     Route: 048
     Dates: start: 20080607, end: 20080608
  2. VASOLAN [Suspect]
     Dosage: NUMBER OF SEPARATE DOSAGES UNKNOWN
     Route: 048
     Dates: start: 20080524, end: 20080601
  3. VASOLAN [Suspect]
     Dosage: NUMBER OF SEPARATE DOSAGES UNKNOWN
     Route: 048
     Dates: start: 20080601, end: 20080608
  4. BEPRICOR [Suspect]
     Dosage: NUMBER OF SEPARATE DOSAGES UNKNOWN
     Route: 048
     Dates: start: 20080524, end: 20080608
  5. WARFARIN SODIUM [Concomitant]
     Dosage: NUMBER OF SEPARATE DOSAGES UNKNOWN
     Route: 048
     Dates: start: 20080524, end: 20080526
  6. WARFARIN SODIUM [Concomitant]
     Dosage: NUMBER OF SEPARATE DOSAGES UNKNOWN
     Route: 048
     Dates: start: 20080527, end: 20080528
  7. WARFARIN SODIUM [Concomitant]
     Dosage: NUMBER OF SEPARATE DOSAGES UNKNOWN
     Route: 048
     Dates: start: 20080529, end: 20080608

REACTIONS (1)
  - SHOCK [None]
